FAERS Safety Report 10192101 (Version 1)
Quarter: 2014Q2

REPORT INFORMATION
  Report Type: Spontaneous
  Country: US (occurrence: US)
  Receive Date: 20140523
  Receipt Date: 20140523
  Transmission Date: 20141212
  Serious: Yes (Hospitalization)
  Sender: FDA-Public Use
  Company Number: US-JNJFOC-20140513986

PATIENT
  Age: 75 Year
  Sex: Female

DRUGS (13)
  1. IMBRUVICA [Suspect]
     Indication: CHRONIC LYMPHOCYTIC LEUKAEMIA
     Route: 048
     Dates: start: 20140426, end: 20140502
  2. AMLODIPINE [Concomitant]
     Route: 048
  3. ATORVASTATIN [Concomitant]
     Route: 048
  4. CARVEDILOL [Concomitant]
     Route: 048
  5. GLIPIZIDE [Concomitant]
     Route: 048
  6. JANUVIA [Concomitant]
     Route: 048
  7. METFORMIN [Concomitant]
     Route: 048
  8. PRO-AIR [Concomitant]
     Route: 048
  9. PROCHLORPERAZINE [Concomitant]
     Route: 048
  10. SULFAMETHOXAZOLE AND TRIMETHOPRIM [Concomitant]
     Route: 048
  11. TEKTURNA [Concomitant]
     Route: 048
  12. ACYCLOVIR [Concomitant]
     Route: 048
  13. KLOR-CON [Concomitant]
     Route: 048

REACTIONS (5)
  - Feeling jittery [Recovered/Resolved]
  - Muscle twitching [Recovered/Resolved]
  - Fall [Recovered/Resolved]
  - Gait disturbance [Recovered/Resolved]
  - Amnesia [Recovered/Resolved]
